FAERS Safety Report 10215041 (Version 1)
Quarter: 2014Q2

REPORT INFORMATION
  Report Type: Spontaneous
  Country: US (occurrence: US)
  Receive Date: 20140603
  Receipt Date: 20140603
  Transmission Date: 20141212
  Serious: Yes (Other)
  Sender: FDA-Public Use
  Company Number: US-TEVA-485826USA

PATIENT
  Sex: Female

DRUGS (2)
  1. PARAGARD 380A [Suspect]
     Indication: CONTRACEPTION
     Route: 015
     Dates: start: 20140523, end: 20140523
  2. PARAGARD 380A [Suspect]
     Route: 015
     Dates: start: 20140523, end: 20140523

REACTIONS (3)
  - Device dislocation [Recovered/Resolved]
  - Uterine perforation [Unknown]
  - Complication of device insertion [Recovered/Resolved]
